FAERS Safety Report 6325632-5 (Version None)
Quarter: 2009Q3

REPORT INFORMATION
  Report Type: 
  Country: None (occurrence: None)
  Receive Date: 20090824
  Receipt Date: 20090722
  Transmission Date: 20100115
  Serious: No
  Sender: FDA-Public Use
  Company Number: US-ABBOTT-09P-163-0586894-00

PATIENT
  Sex: Female
  Weight: 64.922 kg

DRUGS (6)
  1. NIASPAN [Suspect]
     Indication: BLOOD CHOLESTEROL INCREASED
     Dosage: AT BEDTIME
     Dates: start: 20090715
  2. BETA BLOCKER [Concomitant]
     Indication: DRUG USE FOR UNKNOWN INDICATION
  3. CA CHANNEL BLOCKER [Concomitant]
     Indication: DRUG USE FOR UNKNOWN INDICATION
  4. ASPIRIN [Concomitant]
     Indication: DRUG USE FOR UNKNOWN INDICATION
  5. ACE INHIBITOR [Concomitant]
     Indication: DRUG USE FOR UNKNOWN INDICATION
  6. DIURETIC [Concomitant]
     Indication: DRUG USE FOR UNKNOWN INDICATION

REACTIONS (1)
  - POOR QUALITY SLEEP [None]
